FAERS Safety Report 5246925-9 (Version None)
Quarter: 2007Q1

REPORT INFORMATION
  Report Type: 
  Country: None (occurrence: None)
  Receive Date: 20070226
  Receipt Date: 20070220
  Transmission Date: 20070707
  Serious: Yes (Hospitalization)
  Sender: FDA-Public Use
  Company Number: DE-BOEHRINGER INGELHEIM PHARMACEUTICALS, INC.-2007-DE-01101DE

PATIENT
  Sex: Female
  Weight: 70 kg

DRUGS (17)
  1. SIFROL [Suspect]
     Indication: RESTLESS LEGS SYNDROME
     Route: 048
     Dates: start: 20070209, end: 20070214
  2. TORSEMIDE [Concomitant]
     Route: 048
  3. DREISAVIT N [Concomitant]
     Route: 048
  4. BICANORM [Concomitant]
     Route: 048
  5. CPS [Concomitant]
     Route: 048
  6. PHOS EX [Concomitant]
     Route: 048
  7. RENAGEL [Concomitant]
     Route: 048
  8. INSUMAN BASAL [Concomitant]
     Route: 058
  9. INSUMAN BASAL [Concomitant]
     Route: 058
  10. ALLOPURINOL SODIUM [Concomitant]
     Route: 048
  11. MAGNESIUM VERLA N [Concomitant]
     Route: 048
  12. BONDIOL [Concomitant]
     Route: 048
  13. SIMVA BASICS [Concomitant]
     Route: 048
  14. CLEXANE [Concomitant]
     Route: 048
  15. OMEP [Concomitant]
     Route: 048
  16. PROCORALAN [Concomitant]
     Route: 048
  17. NOVAMINSULFON LICHT [Concomitant]
     Dosage: AS REQUIRED
     Route: 048

REACTIONS (3)
  - ANASTOMOTIC STENOSIS [None]
  - EXTRASYSTOLES [None]
  - TACHYCARDIA [None]
